FAERS Safety Report 4599809-3 (Version None)
Quarter: 2005Q1

REPORT INFORMATION
  Report Type: 
  Country: None (occurrence: None)
  Receive Date: 20050303
  Receipt Date: 20050225
  Transmission Date: 20050727
  Serious: Yes (Other)
  Sender: FDA-Public Use
  Company Number: 212683

PATIENT
  Age: 77 Year
  Sex: Female

DRUGS (2)
  1. TNKASE [Suspect]
     Indication: MYOCARDIAL INFARCTION
     Dates: start: 20041217
  2. ANTIBIOTIC NOS (ANTIBIOTIC NOS) [Concomitant]

REACTIONS (2)
  - ANAEMIA [None]
  - PNEUMONIA [None]
